FAERS Safety Report 8603203-5 (Version None)
Quarter: 2012Q3

REPORT INFORMATION
  Report Type: 
  Country: None (occurrence: None)
  Receive Date: 20120817
  Receipt Date: 20120809
  Transmission Date: 20120928
  Serious: Yes (Death, Life-Threatening, Hospitalization)
  Sender: FDA-Public Use
  Company Number: JP-ROCHE-1075204

PATIENT
  Sex: Male
  Weight: 40 kg

DRUGS (12)
  1. LOXONIN [Concomitant]
     Route: 048
     Dates: start: 20120222, end: 20120101
  2. OXALIPLATIN [Suspect]
     Indication: COLON CANCER METASTATIC
     Route: 041
     Dates: start: 20120229, end: 20120410
  3. FLUOROURACIL [Suspect]
     Route: 041
     Dates: start: 20120229, end: 20120427
  4. EMEND [Concomitant]
     Route: 048
     Dates: start: 20120314, end: 20120101
  5. LEVOLEUCOVORIN CALCIUM [Concomitant]
     Indication: COLON CANCER METASTATIC
     Dosage: DOSAGE IS UNCERTAIN.
     Route: 041
     Dates: start: 20120229, end: 20120101
  6. LEVOLEUCOVORIN CALCIUM [Concomitant]
     Dosage: DOSAGE IS UNCERTAIN.
     Route: 041
     Dates: start: 20120314, end: 20120410
  7. EMEND [Concomitant]
     Route: 048
     Dates: start: 20120314, end: 20120101
  8. FLUOROURACIL [Suspect]
     Indication: COLON CANCER METASTATIC
     Dosage: DOSAGE IS UNCERTAIN.
     Route: 040
     Dates: start: 20120229, end: 20120425
  9. FERROUS CITRATE [Concomitant]
     Route: 048
     Dates: start: 20120307, end: 20120101
  10. MAGLAX [Concomitant]
     Route: 048
     Dates: start: 20120215, end: 20120101
  11. AVASTIN [Suspect]
     Indication: COLON CANCER METASTATIC
     Route: 041
     Dates: start: 20120314, end: 20120425
  12. MUCOSTA [Concomitant]
     Route: 048
     Dates: start: 20120222, end: 20120101

REACTIONS (5)
  - GASTROINTESTINAL PERFORATION [None]
  - PERITONITIS [None]
  - WOUND INFECTION [None]
  - DISEASE PROGRESSION [None]
  - WOUND DEHISCENCE [None]
